FAERS Safety Report 13178516 (Version 1)
Quarter: 2017Q1

REPORT INFORMATION
  Report Type: Spontaneous
  Country: US (occurrence: US)
  Receive Date: 20170201
  Receipt Date: 20170201
  Transmission Date: 20170428
  Serious: Yes (Life-Threatening, Disabling, Other)
  Sender: FDA-Public Use
  Company Number: None

PATIENT
  Sex: Female

DRUGS (1)
  1. GADOLINIUM [Suspect]
     Active Substance: GADOLINIUM
     Route: 042

REACTIONS (8)
  - Dehydration [None]
  - Unevaluable event [None]
  - Mental disorder [None]
  - Bone pain [None]
  - Impaired work ability [None]
  - Blood iron increased [None]
  - Arterial disorder [None]
  - Neoplasm [None]
